FAERS Safety Report 5304318-X (Version None)
Quarter: 2007Q2

REPORT INFORMATION
  Report Type: 
  Country: None (occurrence: None)
  Receive Date: 20070423
  Receipt Date: 20070413
  Transmission Date: 20071010
  Serious: Yes (Other)
  Sender: FDA-Public Use
  Company Number: PHBS2007NL06437

PATIENT
  Age: 61 Year
  Sex: Male

DRUGS (1)
  1. NEORAL [Suspect]
     Indication: RENAL TRANSPLANT
     Dosage: 100MG ONCE A DAY, AND 75MG ONCE A DAY
     Route: 048
     Dates: start: 19940101

REACTIONS (2)
  - HYPERPHOSPHATAEMIA [None]
  - PANCREATITIS [None]
